FAERS Safety Report 10181647 (Version 2)
Quarter: 2014Q2

REPORT INFORMATION
  Report Type: Spontaneous
  Country: US (occurrence: US)
  Receive Date: 20140519
  Receipt Date: 20140519
  Transmission Date: 20141212
  Serious: Yes (Hospitalization)
  Sender: FDA-Public Use
  Company Number: US-CELGENEUS-163-21880-14023603

PATIENT
  Age: 87 Year
  Sex: Male

DRUGS (4)
  1. REVLIMID [Suspect]
     Indication: PARAPROTEINAEMIA
     Dosage: 25 MILLIGRAM
     Route: 048
     Dates: start: 20130512, end: 20140131
  2. REVLIMID [Suspect]
     Dosage: 25 MILLIGRAM
     Route: 048
     Dates: start: 20140404
  3. DECADRON [Concomitant]
     Indication: PLASMA CELL MYELOMA
     Route: 065
     Dates: start: 20131212
  4. DECADRON [Concomitant]
     Indication: MYASTHENIA GRAVIS

REACTIONS (4)
  - Malnutrition [Unknown]
  - Dehydration [Recovered/Resolved]
  - Diarrhoea [Unknown]
  - Decreased appetite [Unknown]
